FAERS Safety Report 16709121 (Version 1)
Quarter: 2019Q3

REPORT INFORMATION
  Report Type: Spontaneous
  Country: US (occurrence: US)
  Receive Date: 20190629
  Receipt Date: 20190629
  Transmission Date: 20191004
  Serious: Yes (Hospitalization)
  Sender: FDA-Public Use
  Company Number: None

PATIENT
  Age: 55 Year
  Sex: Female
  Weight: 104.8 kg

DRUGS (5)
  1. PANTOPRAZOLE [Concomitant]
     Active Substance: PANTOPRAZOLE
  2. ANASTROZOLE. [Concomitant]
     Active Substance: ANASTROZOLE
  3. ASPIRIN. [Suspect]
     Active Substance: ASPIRIN
     Dates: end: 20190613
  4. CARVEDILOL. [Concomitant]
     Active Substance: CARVEDILOL
  5. BUMETANIDE. [Concomitant]
     Active Substance: BUMETANIDE

REACTIONS (3)
  - Chest pain [None]
  - Dilatation intrahepatic duct acquired [None]
  - Bile duct stenosis [None]

NARRATIVE: CASE EVENT DATE: 20190613
